FAERS Safety Report 7432538-7 (Version None)
Quarter: 2011Q2

REPORT INFORMATION
  Report Type: 
  Country: None (occurrence: None)
  Receive Date: 20110422
  Receipt Date: 20110419
  Transmission Date: 20111010
  Serious: Yes (Hospitalization)
  Sender: FDA-Public Use
  Company Number: CZ-PFIZER INC-2011049074

PATIENT
  Sex: Male

DRUGS (4)
  1. PRESTARIUM [Concomitant]
     Dosage: 5 MG, 1X/DAY
  2. ISRADIPINE [Concomitant]
     Dosage: 5 MG, 1X/DAY
  3. BETALOC [Concomitant]
     Dosage: 200 MG, 1X/DAY
  4. SUTENT [Suspect]
     Indication: METASTATIC RENAL CELL CARCINOMA
     Dosage: 50 MG, 1X/DAY

REACTIONS (2)
  - FATIGUE [None]
  - LOSS OF CONSCIOUSNESS [None]
